FAERS Safety Report 7471281-5 (Version None)
Quarter: 2011Q2

REPORT INFORMATION
  Report Type: 
  Country: None (occurrence: None)
  Receive Date: 20110510
  Receipt Date: 20110503
  Transmission Date: 20111010
  Serious: Yes (Hospitalization, Other)
  Sender: FDA-Public Use
  Company Number: US-ABBOTT-11P-163-0723426-00

PATIENT
  Sex: Female

DRUGS (13)
  1. XANAX [Concomitant]
     Indication: INSOMNIA
     Route: 048
  2. FISH OIL [Concomitant]
     Indication: PRODUCT USED FOR UNKNOWN INDICATION
  3. MERCAPTOPURINE [Concomitant]
     Indication: CROHN'S DISEASE
     Dates: end: 20110429
  4. CILOSTAZOL [Concomitant]
     Indication: PERIPHERAL VASCULAR DISORDER
     Route: 048
  5. HUMIRA [Suspect]
     Indication: CROHN'S DISEASE
     Route: 058
     Dates: start: 20110419, end: 20110419
  6. ARICEPT [Concomitant]
     Indication: DEMENTIA
     Route: 048
  7. LOVASTATIN [Concomitant]
     Indication: HYPERCHOLESTEROLAEMIA
     Route: 048
  8. PREDNISONE [Concomitant]
     Indication: CROHN'S DISEASE
     Route: 048
  9. SODIUM BICARBONATE [Concomitant]
     Indication: PRODUCT USED FOR UNKNOWN INDICATION
  10. LISINOPRIL [Concomitant]
     Indication: HYPERTENSION
     Route: 048
  11. POTASSIUM CHLORIDE [Concomitant]
     Indication: BLOOD POTASSIUM DECREASED
     Route: 048
  12. LEVOTHYROXINE SODIUM [Concomitant]
     Indication: HYPOTHYROIDISM
     Route: 048
  13. AMBIEN [Concomitant]
     Indication: INSOMNIA
     Route: 048

REACTIONS (7)
  - ASTHENIA [None]
  - DEHYDRATION [None]
  - WHITE BLOOD CELL COUNT DECREASED [None]
  - DYSSTASIA [None]
  - PYREXIA [None]
  - GAIT DISTURBANCE [None]
  - BLOOD COUNT ABNORMAL [None]
